FAERS Safety Report 26140436 (Version 1)
Quarter: 2025Q4

REPORT INFORMATION
  Report Type: Spontaneous
  Country: US (occurrence: None)
  Receive Date: 20251210
  Receipt Date: 20251210
  Transmission Date: 20260117
  Serious: Yes (Other)
  Sender: FDA-CTU
  Company Number: None

PATIENT
  Age: 62 Year
  Sex: Female
  Weight: 102.3 kg

DRUGS (1)
  1. RESMETIROM [Suspect]
     Active Substance: RESMETIROM
     Dosage: FREQUENCY : DAILY;
     Route: 048
     Dates: start: 20250908, end: 20251029

REACTIONS (1)
  - Tendon disorder [None]

NARRATIVE: CASE EVENT DATE: 20251001
